FAERS Safety Report 5153362-4 (Version None)
Quarter: 2006Q4

REPORT INFORMATION
  Report Type: 
  Country: None (occurrence: None)
  Receive Date: 20061117
  Receipt Date: 20060206
  Transmission Date: 20070319
  Serious: Yes (Death)
  Sender: FDA-Public Use
  Company Number: GB-NOVOPROD-250820

PATIENT

DRUGS (1)
  1. NOVOSEVEN [Suspect]
     Indication: ACQUIRED HAEMOPHILIA

REACTIONS (1)
  - RETROPERITONEAL HAEMORRHAGE [None]
